FAERS Safety Report 6109201-8 (Version None)
Quarter: 2009Q1

REPORT INFORMATION
  Report Type: 
  Country: None (occurrence: None)
  Receive Date: 20090310
  Receipt Date: 20090225
  Transmission Date: 20090719
  Serious: Yes (Other)
  Sender: FDA-Public Use
  Company Number: PHEH2004US02117

PATIENT
  Age: 68 Year
  Sex: Female

DRUGS (8)
  1. MIACALCIN [Suspect]
     Indication: OSTEOPOROSIS
     Dosage: 200 IU, QD
     Dates: start: 19910101, end: 20040101
  2. DIOVAN [Concomitant]
  3. SYNTHROID [Concomitant]
  4. CELEBREX [Concomitant]
  5. PRAVACHOL [Concomitant]
  6. NEXIUM [Concomitant]
  7. ZYRTEC [Concomitant]
  8. FLONASE [Concomitant]

REACTIONS (7)
  - BLOODY DISCHARGE [None]
  - CLAVICLE FRACTURE [None]
  - RHINORRHOEA [None]
  - ROAD TRAFFIC ACCIDENT [None]
  - SINUSITIS [None]
  - THYROID NEOPLASM [None]
  - THYROIDECTOMY [None]
